FAERS Safety Report 16874485 (Version 1)
Quarter: 2019Q4

REPORT INFORMATION
  Report Type: Spontaneous
  Country: US (occurrence: US)
  Receive Date: 20191001
  Receipt Date: 20191001
  Transmission Date: 20200122
  Serious: Yes (Hospitalization)
  Sender: FDA-Public Use
  Company Number: US-ELI_LILLY_AND_COMPANY-US201909011279

PATIENT
  Sex: Female
  Weight: 60.77 kg

DRUGS (7)
  1. ORENITRAM [Suspect]
     Active Substance: TREPROSTINIL
     Dosage: 4.125 MG, TID
     Route: 048
  2. ORENITRAM [Suspect]
     Active Substance: TREPROSTINIL
     Indication: PULMONARY ARTERIAL HYPERTENSION
     Dosage: 4.125 MG, TID
     Route: 048
     Dates: start: 20180129
  3. COUMADIN [Concomitant]
     Active Substance: WARFARIN SODIUM
     Indication: PRODUCT USED FOR UNKNOWN INDICATION
  4. BOSENTAN. [Suspect]
     Active Substance: BOSENTAN
     Indication: PRODUCT USED FOR UNKNOWN INDICATION
     Dosage: UNK UNK, UNKNOWN
     Route: 065
  5. ORENITRAM [Suspect]
     Active Substance: TREPROSTINIL
     Dosage: 4.125 MG, TID
     Route: 048
  6. ORENITRAM [Suspect]
     Active Substance: TREPROSTINIL
     Dosage: 4.125 MG, TID
     Route: 048
  7. TADALAFIL. [Suspect]
     Active Substance: TADALAFIL
     Indication: PRODUCT USED FOR UNKNOWN INDICATION
     Dosage: UNK UNK, UNKNOWN
     Route: 065

REACTIONS (1)
  - General physical health deterioration [Unknown]
